FAERS Safety Report 22593705 (Version 1)
Quarter: 2023Q2

REPORT INFORMATION
  Report Type: Spontaneous
  Country: US (occurrence: US)
  Receive Date: 20230613
  Receipt Date: 20230613
  Transmission Date: 20230722
  Serious: Yes (Other)
  Sender: FDA-Public Use
  Company Number: US-GLAXOSMITHKLINE-US2022AMR201030

PATIENT

DRUGS (5)
  1. BENLYSTA [Suspect]
     Active Substance: BELIMUMAB
     Indication: Systemic lupus erythematosus
     Dosage: UNK
     Route: 058
     Dates: start: 20181101
  2. AZATHIOPRINE [Concomitant]
     Active Substance: AZATHIOPRINE
     Indication: Product used for unknown indication
     Dosage: UNK
     Dates: start: 20160801
  3. HYDROXYCHLOROQUINE [Concomitant]
     Active Substance: HYDROXYCHLOROQUINE
     Indication: Product used for unknown indication
     Dosage: UNK
     Dates: start: 20141201
  4. QUINACRINE [Concomitant]
     Active Substance: QUINACRINE
     Indication: Product used for unknown indication
     Dosage: UNK
     Dates: start: 20141201
  5. CHLOROQUINE [Concomitant]
     Active Substance: CHLOROQUINE
     Indication: Product used for unknown indication
     Dosage: UNK
     Dates: start: 20141201

REACTIONS (6)
  - Idiopathic interstitial pneumonia [Recovered/Resolved]
  - Cough [Unknown]
  - Painful respiration [Unknown]
  - Pain [Unknown]
  - Musculoskeletal chest pain [Unknown]
  - Infection [Unknown]

NARRATIVE: CASE EVENT DATE: 20211211
